FAERS Safety Report 7391156-X (Version None)
Quarter: 2011Q2

REPORT INFORMATION
  Report Type: 
  Country: None (occurrence: None)
  Receive Date: 20110404
  Receipt Date: 20100630
  Transmission Date: 20111010
  Serious: Yes (Other)
  Sender: FDA-Public Use
  Company Number: US-PFIZER INC-2010082110

PATIENT
  Age: 11 Year
  Sex: Male

DRUGS (1)
  1. ZOLOFT [Suspect]
     Indication: ANXIETY
     Dosage: 25 MG, 1X/DAY
     Route: 048
     Dates: start: 20091101, end: 20091201

REACTIONS (1)
  - SUICIDAL IDEATION [None]
